FAERS Safety Report 7966430-6 (Version None)
Quarter: 2011Q4

REPORT INFORMATION
  Report Type: 
  Country: None (occurrence: None)
  Receive Date: 20111208
  Receipt Date: 20111129
  Transmission Date: 20120403
  Serious: Yes (Hospitalization)
  Sender: FDA-Public Use
  Company Number: US-ROCHE-1017283

PATIENT
  Sex: Female

DRUGS (3)
  1. COPEGUS [Suspect]
     Indication: HEPATITIS C
     Dosage: FORM AND ROUTE: NOT REPORTED
     Dates: start: 20110827
  2. TELAPREVIR [Suspect]
     Indication: HEPATITIS C
     Dosage: DOSE, FORM AND ROUTE: NOT REPORTED
     Dates: start: 20110827
  3. PEGINTERFERON ALFA-2A [Suspect]
     Indication: HEPATITIS C
     Dosage: ROUTE: NOT REPORTED, LOST DOSE PRIOR TO SAE: ON 12 NOVEMBER 2011
     Dates: start: 20110827

REACTIONS (6)
  - DECREASED APPETITE [None]
  - DEHYDRATION [None]
  - HAEMORRHAGE [None]
  - FEELING JITTERY [None]
  - NAUSEA [None]
  - DYSGEUSIA [None]
